FAERS Safety Report 7111779-2 (Version None)
Quarter: 2010Q4

REPORT INFORMATION
  Report Type: 
  Country: None (occurrence: None)
  Receive Date: 20101119
  Receipt Date: 20101011
  Transmission Date: 20110411
  Serious: Yes (Hospitalization)
  Sender: FDA-Public Use
  Company Number: DE-AMGEN-DEUCT2010000061

PATIENT

DRUGS (6)
  1. ENBREL [Suspect]
     Indication: RHEUMATOID ARTHRITIS
     Route: 058
     Dates: start: 20090907, end: 20100819
  2. OMEPRAZOLE [Concomitant]
     Dates: end: 20100901
  3. TRAMADOL HCL [Concomitant]
  4. RAMIPRIL [Concomitant]
     Indication: HYPERTENSION
     Route: 048
     Dates: start: 20080801
  5. PREDNISOLONE [Concomitant]
     Indication: RHEUMATOID ARTHRITIS
     Dosage: 5MG, FREQUENCY UNKNOWN
     Route: 048
     Dates: start: 20080901, end: 20100415
  6. PREDNISOLONE [Concomitant]
     Dosage: 20MG, FREQUENCY UNKNOWN
     Route: 048
     Dates: start: 20100416, end: 20100901

REACTIONS (2)
  - CONDITION AGGRAVATED [None]
  - RHEUMATOID ARTHRITIS [None]
